FAERS Safety Report 23837088 (Version 1)
Quarter: 2024Q2

REPORT INFORMATION
  Report Type: Spontaneous
  Country: US (occurrence: US)
  Receive Date: 20240509
  Receipt Date: 20240509
  Transmission Date: 20240716
  Serious: Yes (Hospitalization, Other)
  Sender: FDA-Public Use
  Company Number: US-BRISTOL-MYERS SQUIBB COMPANY-2024-069054

PATIENT
  Age: 68 Year
  Sex: Female

DRUGS (1)
  1. LENALIDOMIDE [Suspect]
     Active Substance: LENALIDOMIDE
     Indication: Plasma cell myeloma
     Dosage: TAKE 1 CAPSULE BY MOUTH EVERY OTHER DAY AFTER DIALYSIS AS DIRECTED
     Route: 048
     Dates: end: 20240427

REACTIONS (5)
  - Pneumonia [Recovering/Resolving]
  - Anaemia [Recovering/Resolving]
  - Immunodeficiency [Unknown]
  - Off label use [Unknown]
  - White blood cell count decreased [Unknown]
